FAERS Safety Report 5831621-7 (Version None)
Quarter: 2008Q3

REPORT INFORMATION
  Report Type: 
  Country: None (occurrence: None)
  Receive Date: 20080730
  Receipt Date: 20080721
  Transmission Date: 20090109
  Serious: Yes (Life-Threatening, Hospitalization)
  Sender: FDA-Public Use
  Company Number: 2008AL008462

PATIENT
  Age: 82 Year
  Sex: Female
  Weight: 54.4316 kg

DRUGS (4)
  1. DIGOXIN [Suspect]
     Indication: ARRHYTHMIA
     Dosage: 0.25MG, DAILY, PO
     Route: 048
     Dates: start: 20080207, end: 20080428
  2. AVAPRO [Concomitant]
  3. CATAPRES [Concomitant]
  4. LOPRESSOR [Concomitant]

REACTIONS (3)
  - CARDIOACTIVE DRUG LEVEL ABOVE THERAPEUTIC [None]
  - CEREBROVASCULAR ACCIDENT [None]
  - THERAPEUTIC AGENT TOXICITY [None]
